FAERS Safety Report 9793046 (Version 1)
Quarter: 2013Q4

REPORT INFORMATION
  Report Type: Spontaneous
  Country: US (occurrence: None)
  Receive Date: 20131231
  Receipt Date: 20131231
  Transmission Date: 20140711
  Serious: Yes (Other)
  Sender: FDA-Public Use
  Company Number: None

PATIENT
  Age: 44 Year
  Sex: Male
  Weight: 88.45 kg

DRUGS (1)
  1. AMLODIPINE-BENAZEPRIL [Suspect]
     Indication: HYPERTENSION
     Dosage: 1 CAP
     Route: 048
     Dates: start: 20131225, end: 20131226

REACTIONS (4)
  - Product quality issue [None]
  - Product substitution issue [None]
  - Blood pressure increased [None]
  - Drug ineffective [None]
